FAERS Safety Report 15713054 (Version 1)
Quarter: 2018Q4

REPORT INFORMATION
  Report Type: Spontaneous
  Country: US (occurrence: US)
  Receive Date: 20181211
  Receipt Date: 20181211
  Transmission Date: 20190205
  Serious: Yes (Other)
  Sender: FDA-Public Use
  Company Number: None

PATIENT
  Age: 42 Year
  Sex: Female
  Weight: 147.6 kg

DRUGS (1)
  1. IC AMLODIPINE BESYLATE [Suspect]
     Active Substance: AMLODIPINE BESYLATE
     Indication: HYPERTENSION
     Dosage: ?          QUANTITY:30 TABLET(S);?
     Route: 048
     Dates: start: 20181130, end: 20181210

REACTIONS (9)
  - Injury [None]
  - Road traffic accident [None]
  - Pruritus [None]
  - Vision blurred [None]
  - Drug ineffective [None]
  - Confusional state [None]
  - Fatigue [None]
  - Loss of consciousness [None]
  - Dizziness [None]

NARRATIVE: CASE EVENT DATE: 20181205
